FAERS Safety Report 24592658 (Version 1)
Quarter: 2024Q4

REPORT INFORMATION
  Report Type: Spontaneous
  Country: CN (occurrence: CN)
  Receive Date: 20241108
  Receipt Date: 20241108
  Transmission Date: 20250115
  Serious: Yes (Life-Threatening, Hospitalization)
  Sender: ACCORD
  Company Number: CN-MLMSERVICE-20241023-PI236992-00255-2

PATIENT
  Age: 62 Year
  Sex: Male

DRUGS (3)
  1. CISPLATIN [Suspect]
     Active Substance: CISPLATIN
     Indication: Squamous cell carcinoma of the oral cavity
     Dosage: 40 MG
  2. PACLITAXEL [Suspect]
     Active Substance: PACLITAXEL
     Indication: Squamous cell carcinoma of the oral cavity
     Dosage: 400MG
  3. PENPULIMAB [Suspect]
     Active Substance: PENPULIMAB
     Indication: Squamous cell carcinoma of the oral cavity
     Dosage: 200 MG

REACTIONS (2)
  - Myelosuppression [Unknown]
  - Gastrointestinal haemorrhage [Recovered/Resolved]
